FAERS Safety Report 6909463-0 (Version None)
Quarter: 2010Q3

REPORT INFORMATION
  Report Type: 
  Country: None (occurrence: None)
  Receive Date: 20100805
  Receipt Date: 20100728
  Transmission Date: 20110219
  Serious: Yes (Other)
  Sender: FDA-Public Use
  Company Number: CO-PFIZER INC-2010089142

PATIENT
  Age: 67 Year
  Sex: Male

DRUGS (2)
  1. CHAMPIX [Suspect]
     Indication: SMOKING CESSATION THERAPY
     Dosage: 1 MG, 2X/DAY
     Route: 048
     Dates: start: 20091128
  2. LOSARTAN [Concomitant]
     Indication: HYPERTENSION
     Dosage: 100 MG, UNK

REACTIONS (3)
  - ANEURYSM [None]
  - NAUSEA [None]
  - SOMNOLENCE [None]
